FAERS Safety Report 8911560 (Version 1)
Quarter: 2012Q4

REPORT INFORMATION
  Report Type: 
  Country: VE (occurrence: VE)
  Receive Date: 20121116
  Receipt Date: 20121116
  Transmission Date: 20130627
  Serious: Yes (Other)
  Sender: FDA-Public Use
  Company Number: VE-PFIZER INC-2012286743

PATIENT
  Age: 46 Year
  Sex: Female

DRUGS (1)
  1. ZOLOFT [Suspect]
     Dosage: 50 mg, 1x/day
     Route: 048
     Dates: start: 20120913, end: 20121101

REACTIONS (2)
  - Extremity necrosis [Recovered/Resolved]
  - Thrombosis [Recovered/Resolved]
